FAERS Safety Report 25203018 (Version 2)
Quarter: 2025Q2

REPORT INFORMATION
  Report Type: Spontaneous
  Country: CN (occurrence: CN)
  Receive Date: 20250416
  Receipt Date: 20250513
  Transmission Date: 20250716
  Serious: Yes (Hospitalization, Other)
  Sender: RANBAXY
  Company Number: CN-SUN PHARMACEUTICAL INDUSTRIES LTD-2025R1-503336

PATIENT
  Age: 14 Year
  Sex: Female
  Weight: 23.15 kg

DRUGS (1)
  1. CYPROTERONE ACETATE\ETHINYL ESTRADIOL [Suspect]
     Active Substance: CYPROTERONE ACETATE\ETHINYL ESTRADIOL
     Indication: Abnormal uterine bleeding
     Route: 048

REACTIONS (2)
  - Superior sagittal sinus thrombosis [Recovered/Resolved]
  - Cerebral venous thrombosis [Recovered/Resolved]
